FAERS Safety Report 20482311 (Version 2)
Quarter: 2022Q1

REPORT INFORMATION
  Report Type: Report from Study
  Country: TH (occurrence: TH)
  Receive Date: 20220216
  Receipt Date: 20220308
  Transmission Date: 20220424
  Serious: Yes (Hospitalization, Other)
  Sender: FDA-Public Use
  Company Number: TH-TAKEDA-2022TUS010281

PATIENT
  Age: 79 Year
  Sex: Male

DRUGS (1)
  1. ANTI-INHIBITOR COAGULANT COMPLEX [Suspect]
     Active Substance: ANTI-INHIBITOR COAGULANT COMPLEX
     Indication: Factor VIII deficiency
     Dosage: 1000 INTERNATIONAL UNIT, 1/WEEK
     Route: 042
     Dates: start: 20220201

REACTIONS (2)
  - Haemorrhage [Unknown]
  - Peripheral swelling [Unknown]

NARRATIVE: CASE EVENT DATE: 20220201
